FAERS Safety Report 9798260 (Version 2)
Quarter: 2014Q1

REPORT INFORMATION
  Report Type: Spontaneous
  Country: JP (occurrence: JP)
  Receive Date: 20140106
  Receipt Date: 20140106
  Transmission Date: 20141002
  Serious: Yes (Death, Hospitalization)
  Sender: FDA-Public Use
  Company Number: JP-PFIZER INC-JP-WYE-H09093509

PATIENT
  Age: 70 Year
  Sex: Male

DRUGS (8)
  1. ISOVORIN [Suspect]
     Indication: COLON CANCER
     Dosage: 200 MG/M2, UNK
     Route: 041
  2. IRINOTECAN HCL [Suspect]
     Indication: COLON CANCER
     Dosage: 150 MG/M2, ON DAY 1, REPEATED EVERY 2 WEEKS
     Route: 042
  3. OXALIPLATIN [Suspect]
     Indication: COLON CANCER
     Dosage: 400 MG/M2, CYCLIC
     Route: 042
  4. OXALIPLATIN [Suspect]
     Dosage: 2400 MG/M2, EVERY TWO WEEKS
  5. BEVACIZUMAB [Concomitant]
     Indication: COLON CANCER
     Dosage: 330 MG/M2, ON DAY 1, EVERY TWO WEEKS
  6. 5-FU [Concomitant]
     Indication: COLON CANCER
     Dosage: 400 MG/M2 ON DAY 1, REPEATED EVERY 2 WEEKS
     Route: 042
  7. 5-FU [Concomitant]
     Dosage: 2400 MG/M2, AT 46 HOURS EVERY 2 WEEKS
  8. TS-1 [Concomitant]
     Indication: COLON CANCER
     Dosage: 100 MG, DAILY

REACTIONS (1)
  - Pulmonary oedema [Fatal]
